FAERS Safety Report 13522344 (Version 1)
Quarter: 2017Q2

REPORT INFORMATION
  Report Type: Spontaneous
  Country: US (occurrence: US)
  Receive Date: 20170508
  Receipt Date: 20170508
  Transmission Date: 20170830
  Serious: Yes (Disabling)
  Sender: FDA-Public Use
  Company Number: None

PATIENT
  Age: 18 Year
  Sex: Female
  Weight: 63 kg

DRUGS (6)
  1. BUTALBITOL [Concomitant]
  2. MAGNESIUM [Concomitant]
     Active Substance: MAGNESIUM
  3. TYLENOL [Concomitant]
     Active Substance: ACETAMINOPHEN
  4. CIPROFLOACN [Suspect]
     Active Substance: CIPROFLOXACIN
     Indication: MYCOPLASMA INFECTION
     Dosage: ?          QUANTITY:1 TABLET(S);?
     Route: 048
     Dates: start: 20160712, end: 20160716
  5. COQ10 [Concomitant]
     Active Substance: UBIDECARENONE
  6. TUMERIC [Concomitant]
     Active Substance: HERBALS\TURMERIC

REACTIONS (37)
  - Mental disorder [None]
  - Contusion [None]
  - Vitreous floaters [None]
  - Burning sensation [None]
  - Tendon pain [None]
  - Musculoskeletal stiffness [None]
  - Rash [None]
  - Decreased appetite [None]
  - Feeling hot [None]
  - Alopecia [None]
  - Insomnia [None]
  - Feeling cold [None]
  - Abasia [None]
  - Gait disturbance [None]
  - Ear pain [None]
  - Paraesthesia [None]
  - Headache [None]
  - Hypoaesthesia [None]
  - Hand deformity [None]
  - Stiff leg syndrome [None]
  - Joint swelling [None]
  - Muscle strain [None]
  - Tendon rupture [None]
  - Arthralgia [None]
  - Feeling abnormal [None]
  - Nausea [None]
  - Fatigue [None]
  - Muscular weakness [None]
  - Skin discolouration [None]
  - Abnormal dreams [None]
  - Pain in extremity [None]
  - Dyspnoea exertional [None]
  - Cognitive disorder [None]
  - Vomiting [None]
  - Memory impairment [None]
  - Abdominal pain upper [None]
  - Pain [None]

NARRATIVE: CASE EVENT DATE: 20160716
